FAERS Safety Report 4667508-5 (Version None)
Quarter: 2005Q2

REPORT INFORMATION
  Report Type: 
  Country: None (occurrence: None)
  Receive Date: 20050519
  Receipt Date: 20050519
  Transmission Date: 20051028
  Serious: Yes (Other)
  Sender: FDA-Public Use
  Company Number: None

PATIENT
  Sex: Female
  Weight: 72.5755 kg

DRUGS (1)
  1. TEQUIN [Suspect]
     Indication: BACTERIAL INFECTION
     Dosage: 400 MG   QD    ORAL
     Route: 048
     Dates: start: 20050315, end: 20050316

REACTIONS (1)
  - HALLUCINATION [None]
